FAERS Safety Report 5948629-3 (Version None)
Quarter: 2008Q4

REPORT INFORMATION
  Report Type: 
  Country: None (occurrence: None)
  Receive Date: 20081107
  Receipt Date: 20081024
  Transmission Date: 20090506
  Serious: Yes (Life-Threatening, Hospitalization)
  Sender: FDA-Public Use
  Company Number: AUS2004-06530

PATIENT
  Age: 6 Year
  Sex: Male

DRUGS (5)
  1. TRACLEER [Suspect]
     Indication: PULMONARY ARTERIAL HYPERTENSION
     Dosage: 31.25 MG, BID, ORAL
     Route: 048
     Dates: start: 20020801, end: 20040602
  2. PROTAMINE SULFATE [Suspect]
     Dosage: INTRAVENOUS
     Route: 042
     Dates: start: 20040702
  3. DIGOXIN [Concomitant]
  4. LASIX [Concomitant]
  5. HEPARIN [Concomitant]

REACTIONS (12)
  - ACTIVATED PARTIAL THROMBOPLASTIN TIME PROLONGED [None]
  - AIR EMBOLISM [None]
  - ANAPHYLACTIC SHOCK [None]
  - BLOOD FIBRINOGEN DECREASED [None]
  - BRADYCARDIA [None]
  - CARDIAC ARREST [None]
  - CARDIAC PROCEDURE COMPLICATION [None]
  - DRUG INTERACTION [None]
  - INTERNATIONAL NORMALISED RATIO INCREASED [None]
  - LOW CARDIAC OUTPUT SYNDROME [None]
  - PROTHROMBIN TIME PROLONGED [None]
  - VENTRICULAR HYPOKINESIA [None]
